FAERS Safety Report 24740020 (Version 3)
Quarter: 2025Q1

REPORT INFORMATION
  Report Type: Spontaneous
  Country: JP (occurrence: JP)
  Receive Date: 20241216
  Receipt Date: 20250224
  Transmission Date: 20250408
  Serious: Yes (Life-Threatening, Other)
  Sender: JAZZ
  Company Number: JP-JAZZ PHARMACEUTICALS-2024-JP-014989

PATIENT
  Age: 75 Year
  Sex: Female
  Weight: 39 kg

DRUGS (3)
  1. VYXEOS [Suspect]
     Active Substance: CYTARABINE\DAUNORUBICIN
     Indication: Acute myeloid leukaemia
     Route: 042
     Dates: start: 20240708, end: 20240708
  2. VYXEOS [Suspect]
     Active Substance: CYTARABINE\DAUNORUBICIN
     Dates: start: 20240710, end: 20240710
  3. VYXEOS [Suspect]
     Active Substance: CYTARABINE\DAUNORUBICIN
     Route: 042
     Dates: start: 20240712, end: 20240712

REACTIONS (5)
  - Escherichia bacteraemia [Recovered/Resolved]
  - Pathogen resistance [Recovered/Resolved]
  - Febrile neutropenia [Recovered/Resolved]
  - Catheter site infection [Recovered/Resolved]
  - Dementia [Recovering/Resolving]

NARRATIVE: CASE EVENT DATE: 20240714
